FAERS Safety Report 12663977 (Version 4)
Quarter: 2016Q4

REPORT INFORMATION
  Report Type: Report from Study
  Country: CO (occurrence: CO)
  Receive Date: 20160818
  Receipt Date: 20161230
  Transmission Date: 20170207
  Serious: Yes (Hospitalization)
  Sender: FDA-Public Use
  Company Number: CO-009507513-1608COL006596

PATIENT
  Age: 24 Year
  Sex: Female
  Weight: 68 kg

DRUGS (5)
  1. PEGINTRON [Suspect]
     Active Substance: PEGINTERFERON ALFA-2B
     Indication: IMMUNOMODULATORY THERAPY
  2. SIMEPREVIR [Suspect]
     Active Substance: SIMEPREVIR
     Indication: HEPATITIS C
     Dosage: 150 MG, QD
     Route: 048
     Dates: start: 20160718
  3. REBETOL [Suspect]
     Active Substance: RIBAVIRIN
     Dosage: 800 MG DAILY
     Route: 048
     Dates: start: 20161115
  4. REBETOL [Suspect]
     Active Substance: RIBAVIRIN
     Indication: HEPATITIS C
     Dosage: 400 MG IN THE MORNING AND 600 MG AT NIGHT
     Route: 048
     Dates: start: 20160718, end: 20161115
  5. PEGINTRON [Suspect]
     Active Substance: PEGINTERFERON ALFA-2B
     Indication: HEPATITIS C
     Dosage: 100 MICROGRAM, QW
     Route: 058
     Dates: start: 20160718

REACTIONS (7)
  - Haematoma [Unknown]
  - Epistaxis [Unknown]
  - Haemoglobin decreased [Unknown]
  - Colitis [Recovered/Resolved]
  - Depression [Unknown]
  - Arthralgia [Not Recovered/Not Resolved]
  - Gingival bleeding [Unknown]

NARRATIVE: CASE EVENT DATE: 2016
